FAERS Safety Report 23760816 (Version 1)
Quarter: 2024Q2

REPORT INFORMATION
  Report Type: Spontaneous
  Country: GB (occurrence: GB)
  Receive Date: 20240419
  Receipt Date: 20240419
  Transmission Date: 20240715
  Serious: Yes (Other)
  Sender: FDA-Public Use
  Company Number: GB-MHRA-MED-202404091055299140-KFMZB

PATIENT
  Age: 52 Year
  Sex: Female
  Weight: 80 kg

DRUGS (2)
  1. MIRTAZAPINE [Suspect]
     Active Substance: MIRTAZAPINE
     Indication: Depressed mood
     Dosage: 15 MILLIGRAM, ONCE A DAY AT NIGHT
     Route: 065
     Dates: start: 20240318, end: 20240409
  2. SIMVASTATIN [Concomitant]
     Active Substance: SIMVASTATIN
     Indication: Hypercholesterolaemia
     Dosage: UNK
     Route: 065

REACTIONS (3)
  - Eye swelling [Recovering/Resolving]
  - Pharyngeal swelling [Recovering/Resolving]
  - Submaxillary gland enlargement [Recovering/Resolving]

NARRATIVE: CASE EVENT DATE: 20240407
